FAERS Safety Report 7237922-2 (Version None)
Quarter: 2011Q1

REPORT INFORMATION
  Report Type: 
  Country: None (occurrence: None)
  Receive Date: 20110119
  Receipt Date: 20110119
  Transmission Date: 20110831
  Serious: Yes (Life-Threatening, Hospitalization)
  Sender: FDA-Public Use
  Company Number: None

PATIENT
  Age: 62 Year
  Sex: Male
  Weight: 46 kg

DRUGS (1)
  1. ACETAMINOPHEN [Suspect]
     Indication: PAIN
     Dosage: 5000 MG QID PO
     Route: 048
     Dates: start: 20101230, end: 20110106

REACTIONS (6)
  - INTERNATIONAL NORMALISED RATIO ABNORMAL [None]
  - HEPATIC ENZYME INCREASED [None]
  - GASTRIC HAEMORRHAGE [None]
  - INCORRECT DOSE ADMINISTERED [None]
  - SELF-MEDICATION [None]
  - DECREASED APPETITE [None]
